FAERS Safety Report 8460406-0 (Version None)
Quarter: 2012Q2

REPORT INFORMATION
  Report Type: 
  Country: None (occurrence: None)
  Receive Date: 20120622
  Receipt Date: 20120613
  Transmission Date: 20120825
  Serious: Yes (Hospitalization, Other)
  Sender: FDA-Public Use
  Company Number: US-ASTRAZENECA-2012SE40149

PATIENT
  Age: 23 Year
  Sex: Female
  Weight: 45.4 kg

DRUGS (23)
  1. PULMICORT [Suspect]
     Dosage: 1 MG INHALATION CONTENTS OF 1 AMPULE DAILY
     Route: 055
  2. ATACAND [Suspect]
     Route: 048
  3. CRESTOR [Suspect]
     Route: 048
  4. NEURONTIN [Concomitant]
     Route: 048
  5. NORVASC [Concomitant]
     Route: 048
  6. ZOLOFT [Concomitant]
     Route: 048
  7. SEROQUEL [Suspect]
     Route: 048
  8. MEGACE [Concomitant]
     Route: 048
  9. ZOLOFT [Concomitant]
     Route: 048
  10. GLUCOTROL [Concomitant]
     Route: 048
  11. ZITHROMAX [Concomitant]
     Route: 048
  12. THEO-DUR [Concomitant]
     Route: 048
  13. MEDROL [Concomitant]
     Route: 048
  14. NEXIUM [Suspect]
     Route: 048
  15. ENSURE HIGH PROTEIN STRAWBERRIES AND CREAM [Concomitant]
     Dosage: 1 CAN TID
  16. LEVOTHROID [Concomitant]
     Route: 048
  17. ARTHROTEC [Concomitant]
     Dosage: 75/200MCG TABLET TAKE 1 BY MOUTH BID
     Route: 048
  18. IPRATROPIUM BROMIDE [Concomitant]
     Route: 055
  19. SINGULAIR [Concomitant]
     Route: 048
  20. SYMBICORT [Suspect]
     Dosage: 160/4.5 MCG TWO INHALATIONS TWO TIMES A DAY
     Route: 055
  21. COLESTID [Concomitant]
     Dosage: 5 MG FOR ORAL SUSPENSION USP MIX 1 PACKET IN 2-6 ONCES OF WATER OR JUICE BID
     Route: 048
  22. DILANTIN [Concomitant]
     Route: 048
  23. RHINOCORT [Suspect]
     Dosage: 32 MCG 1 SPRAY IN EACH NOSTRIL DAILY
     Route: 045

REACTIONS (28)
  - DYSPNOEA [None]
  - HYPERTENSION [None]
  - ARTHRITIS [None]
  - OESOPHAGITIS [None]
  - INTERVERTEBRAL DISC DISORDER [None]
  - RHONCHI [None]
  - WHEEZING [None]
  - DYSPEPSIA [None]
  - BRONCHITIS CHRONIC [None]
  - CHRONIC OBSTRUCTIVE PULMONARY DISEASE [None]
  - PNEUMONIA [None]
  - TYPE 2 DIABETES MELLITUS [None]
  - GLIOBLASTOMA MULTIFORME [None]
  - FATIGUE [None]
  - UPPER RESPIRATORY TRACT INFECTION [None]
  - ACTIVITIES OF DAILY LIVING IMPAIRED [None]
  - PANIC ATTACK [None]
  - MAJOR DEPRESSION [None]
  - OFF LABEL USE [None]
  - HYPERLIPIDAEMIA [None]
  - BACK PAIN [None]
  - COUGH [None]
  - GASTROOESOPHAGEAL REFLUX DISEASE [None]
  - MENINGITIS [None]
  - ASTHMA [None]
  - NECK PAIN [None]
  - HYPOTHYROIDISM [None]
  - TENSION HEADACHE [None]
